FAERS Safety Report 24922918 (Version 1)
Quarter: 2025Q1

REPORT INFORMATION
  Report Type: Spontaneous
  Country: US (occurrence: US)
  Receive Date: 20250204
  Receipt Date: 20250204
  Transmission Date: 20250408
  Serious: Yes (Other)
  Sender: PFIZER
  Company Number: US-PFIZER INC-202400305877

PATIENT
  Age: 77 Year
  Sex: Female

DRUGS (1)
  1. IBRANCE [Suspect]
     Active Substance: PALBOCICLIB
     Route: 048

REACTIONS (5)
  - Visual impairment [Not Recovered/Not Resolved]
  - Second primary malignancy [Unknown]
  - Neoplasm malignant [Unknown]
  - Nervousness [Unknown]
  - Cerebral disorder [Unknown]
